FAERS Safety Report 4655548-1 (Version None)
Quarter: 2005Q2

REPORT INFORMATION
  Report Type: 
  Country: None (occurrence: None)
  Receive Date: 20050505
  Receipt Date: 20050422
  Transmission Date: 20051028
  Serious: Yes (Hospitalization, Other)
  Sender: FDA-Public Use
  Company Number: 2005064061

PATIENT
  Sex: Female
  Weight: 104.3273 kg

DRUGS (3)
  1. NARDIL [Suspect]
     Indication: DEPRESSION
     Dosage: 60 MG (15 MG 1 D) ORAL
     Route: 048
  2. CLONAZEPAM [Concomitant]
  3. LEVOTHYROXINE SODIUM [Concomitant]

REACTIONS (11)
  - ABNORMAL DREAMS [None]
  - ANXIETY [None]
  - CONDITION AGGRAVATED [None]
  - DEPRESSION [None]
  - DISEASE RECURRENCE [None]
  - DRUG EFFECT DECREASED [None]
  - HYSTERECTOMY [None]
  - INSOMNIA [None]
  - PANIC ATTACK [None]
  - SUICIDE ATTEMPT [None]
  - VISION BLURRED [None]
